FAERS Safety Report 9945905 (Version 2)
Quarter: 2014Q1

REPORT INFORMATION
  Report Type: Spontaneous
  Country: US (occurrence: US)
  Receive Date: 20140303
  Receipt Date: 20140303
  Transmission Date: 20141002
  Serious: No
  Sender: FDA-Public Use
  Company Number: US-AMGEN-USASP2013068580

PATIENT
  Age: 62 Year
  Sex: Female

DRUGS (12)
  1. ENBREL [Suspect]
     Indication: RHEUMATOID ARTHRITIS
     Dosage: 50 MG, QWK
     Route: 065
     Dates: start: 20130701, end: 20130903
  2. METHOTREXATE [Concomitant]
     Dosage: 2.5 MG, UNK
  3. CELEBREX [Concomitant]
     Dosage: 200 MG, UNK
  4. OMEPRAZOLE [Concomitant]
     Dosage: 10 MG, UNK
  5. FOLIC ACID [Concomitant]
     Dosage: UNK
  6. CENTRUM                            /02217401/ [Concomitant]
     Dosage: UNK
  7. GLUCOSAMINE AND CHONDROITIN [Concomitant]
     Dosage: 250-200
  8. FISH OIL [Concomitant]
     Dosage: UNK
  9. FLAXSEED OIL [Concomitant]
     Dosage: UNK
  10. CAL MAG ZINC [Concomitant]
     Dosage: UNK
  11. CALCIUM CITRATE [Concomitant]
     Dosage: 150 MG, UNK
  12. PREDNISONE [Concomitant]
     Dosage: UNK

REACTIONS (5)
  - Ear pain [Not Recovered/Not Resolved]
  - Pain in jaw [Not Recovered/Not Resolved]
  - Toothache [Not Recovered/Not Resolved]
  - Sinusitis [Not Recovered/Not Resolved]
  - Injection site rash [Unknown]
